FAERS Safety Report 7760502 (Version 2)
Quarter: 2012Q4

REPORT INFORMATION
  Report Type: 
  Country: VE (occurrence: VE)
  Receive Date: 20110114
  Receipt Date: 20121111
  Transmission Date: 20130627
  Serious: Yes (Hospitalization, Other)
  Sender: FDA-Public Use
  Company Number: PHHY2011VE01299

PATIENT
  Sex: Female

DRUGS (4)
  1. ACLASTA [Suspect]
     Indication: OSTEOPOROSIS
     Dosage: 5 mg,annually
     Route: 042
     Dates: start: 200912
  2. EXFORGE [Suspect]
     Indication: HYPERTENSION
     Dosage: 1 DF, QD
     Route: 048
     Dates: start: 2009
  3. EUTHYROX [Concomitant]
     Indication: THYROID DISORDER
     Dosage: 100 mg, daily
     Route: 048
     Dates: start: 2007
  4. CORASPIRINA [Concomitant]
     Dosage: 100 mg, twice a week
     Route: 048

REACTIONS (8)
  - Meniscal degeneration [Recovered/Resolved]
  - Bone disorder [Recovered/Resolved]
  - Cardiac disorder [Recovered/Resolved]
  - Arthritis infective [Recovered/Resolved]
  - Asphyxia [Recovered/Resolved]
  - Emphysema [Recovered/Resolved]
  - Rash [Recovered/Resolved]
  - Chills [Recovered/Resolved]
